FAERS Safety Report 18071646 (Version 1)
Quarter: 2020Q3

REPORT INFORMATION
  Report Type: Spontaneous
  Country: LB (occurrence: LB)
  Receive Date: 20200727
  Receipt Date: 20200727
  Transmission Date: 20201103
  Serious: Yes (Hospitalization, Other)
  Sender: FDA-Public Use
  Company Number: LB-AMGEN-LBNSP2020115706

PATIENT
  Age: 47 Year
  Sex: Female
  Weight: 57 kg

DRUGS (1)
  1. AMGEVITA [Suspect]
     Active Substance: ADALIMUMAB
     Indication: CROHN^S DISEASE
     Dosage: 40 MILLIGRAM PER MILLILITRE, Q2WK
     Route: 058
     Dates: start: 202004

REACTIONS (7)
  - Dizziness [Recovering/Resolving]
  - Pyrexia [Recovering/Resolving]
  - Bradycardia [Recovering/Resolving]
  - Rash [Recovering/Resolving]
  - Emotional disorder [Recovering/Resolving]
  - Vomiting [Recovering/Resolving]
  - Hypotension [Recovering/Resolving]

NARRATIVE: CASE EVENT DATE: 2020
